FAERS Safety Report 17065699 (Version 1)
Quarter: 2019Q4

REPORT INFORMATION
  Report Type: Spontaneous
  Country: US (occurrence: US)
  Receive Date: 20191122
  Receipt Date: 20191122
  Transmission Date: 20200122
  Serious: No
  Sender: FDA-Public Use
  Company Number: US-PERRIGO-19US001455

PATIENT
  Age: 79 Year
  Sex: Male
  Weight: 91.61 kg

DRUGS (1)
  1. POLYETHYLENE GLYCOL 3350. [Suspect]
     Active Substance: POLYETHYLENE GLYCOL 3350
     Indication: THERAPEUTIC PROCEDURE
     Dosage: 34 G, TWICE
     Route: 048
     Dates: start: 20190129, end: 20190129

REACTIONS (2)
  - Overdose [Recovered/Resolved]
  - Off label use [Recovered/Resolved]

NARRATIVE: CASE EVENT DATE: 20190129
